FAERS Safety Report 7650802-3 (Version None)
Quarter: 2011Q3

REPORT INFORMATION
  Report Type: 
  Country: None (occurrence: None)
  Receive Date: 20110802
  Receipt Date: 20110722
  Transmission Date: 20111222
  Serious: Yes (Hospitalization)
  Sender: FDA-Public Use
  Company Number: JP-MERCK-1107USA03614

PATIENT
  Age: 56 Year
  Sex: Female

DRUGS (2)
  1. TERRANAS [Concomitant]
     Route: 048
     Dates: start: 20110202
  2. MAXALT [Suspect]
     Indication: MIGRAINE
     Route: 048
     Dates: start: 20090101

REACTIONS (2)
  - SUBARACHNOID HAEMORRHAGE [None]
  - CEREBRAL VASOCONSTRICTION [None]
